FAERS Safety Report 9172125 (Version 1)
Quarter: 2013Q1

REPORT INFORMATION
  Report Type: Spontaneous
  Country: US (occurrence: US)
  Receive Date: 20130319
  Receipt Date: 20130319
  Transmission Date: 20140127
  Serious: Yes (Other)
  Sender: FDA-Public Use
  Company Number: US-US-EMD SERONO, INC.-7147859

PATIENT
  Sex: Male

DRUGS (1)
  1. REBIF [Suspect]
     Indication: MULTIPLE SCLEROSIS
     Route: 058
     Dates: start: 20110912, end: 20130308

REACTIONS (9)
  - Central nervous system lesion [Unknown]
  - Formication [Unknown]
  - Loss of consciousness [Recovering/Resolving]
  - Road traffic accident [Unknown]
  - Dizziness [Unknown]
  - Multiple sclerosis [Unknown]
  - Multiple sclerosis relapse [Unknown]
  - Depression [Unknown]
  - Injection site reaction [Unknown]
